FAERS Safety Report 9240385 (Version 4)
Quarter: 2013Q4

REPORT INFORMATION
  Report Type: Spontaneous
  Country: US (occurrence: US)
  Receive Date: 20130418
  Receipt Date: 20131120
  Transmission Date: 20140711
  Serious: Yes (Hospitalization, Other)
  Sender: FDA-Public Use
  Company Number: US-B.I. PHARMACEUTICALS,INC./RIDGEFIELD-2013-BI-09840BP

PATIENT
  Age: 88 Year
  Sex: Female

DRUGS (7)
  1. PRADAXA [Suspect]
     Indication: ATRIAL FIBRILLATION
     Dosage: 300 MG
     Route: 048
     Dates: start: 20101129, end: 20110912
  2. STROVITE PLUS [Concomitant]
  3. DYAZIDE [Concomitant]
  4. OS-CAL [Concomitant]
  5. DILTIAZEM [Concomitant]
     Dosage: 60 MG
  6. LORTAB [Concomitant]
  7. SYNTHROID [Concomitant]
     Dosage: 112 MCG

REACTIONS (3)
  - Urinary tract infection [Unknown]
  - Anaemia [Unknown]
  - Occult blood positive [Unknown]
